FAERS Safety Report 9213206 (Version 3)
Quarter: 2013Q3

REPORT INFORMATION
  Report Type: Spontaneous
  Country: US (occurrence: US)
  Receive Date: 20130405
  Receipt Date: 20130702
  Transmission Date: 20140515
  Serious: Yes (Disabling)
  Sender: FDA-Public Use
  Company Number: US-JNJFOC-20130400275

PATIENT
  Age: 61 Year
  Sex: Female

DRUGS (2)
  1. STELARA [Suspect]
     Indication: PSORIASIS
     Dosage: FIRST OR SECOND DOSE
     Route: 058
     Dates: start: 20121129
  2. STELARA [Suspect]
     Indication: PSORIASIS
     Dosage: THIRD INJECTION
     Route: 058

REACTIONS (2)
  - Dermatitis psoriasiform [Unknown]
  - Gout [Recovering/Resolving]
